FAERS Safety Report 9745320 (Version 1)
Quarter: 2013Q4

REPORT INFORMATION
  Report Type: Spontaneous
  Country: US (occurrence: US)
  Receive Date: 20131211
  Receipt Date: 20131211
  Transmission Date: 20140711
  Serious: No
  Sender: FDA-Public Use
  Company Number: US-JNJFOC-20131109785

PATIENT
  Age: 44 Year
  Sex: Female
  Weight: 65.32 kg

DRUGS (2)
  1. INVEGA [Suspect]
     Indication: SCHIZOPHRENIA
     Route: 048
     Dates: start: 20131108
  2. BENADRYL [Concomitant]
     Indication: INSOMNIA
     Route: 065

REACTIONS (1)
  - Insomnia [Unknown]
